FAERS Safety Report 9411200 (Version 1)
Quarter: 2013Q3

REPORT INFORMATION
  Report Type: Spontaneous
  Country: NL (occurrence: NL)
  Receive Date: 20130722
  Receipt Date: 20130722
  Transmission Date: 20140515
  Serious: Yes (Death)
  Sender: FDA-Public Use
  Company Number: NL-AMGEN-NLDSP2013050283

PATIENT
  Age: 68 Year
  Sex: Female

DRUGS (9)
  1. XGEVA [Suspect]
     Indication: BONE DISORDER
     Dosage: 120 MG, Q4WK
     Dates: start: 20130309
  2. PANTOPRAZOL [Concomitant]
     Dosage: 40 MG, UNK
  3. METOCLOPRAM [Concomitant]
     Dosage: 10 MG, UNK
  4. NIFEDIPINE [Concomitant]
     Dosage: 30 MG, UNK
  5. MOVICOLON [Concomitant]
  6. DICLOFENAC [Concomitant]
     Dosage: 50 MG, UNK
  7. PARACETAMOL [Concomitant]
     Dosage: 1000 MG, UNK
  8. OXYCODON [Concomitant]
     Dosage: 10 MG, UNK
  9. TEMAZEPAM [Concomitant]
     Dosage: 10 MG, UNK

REACTIONS (1)
  - Death [Fatal]
